FAERS Safety Report 6025972-3 (Version None)
Quarter: 2009Q1

REPORT INFORMATION
  Report Type: 
  Country: None (occurrence: None)
  Receive Date: 20090102
  Receipt Date: 20081202
  Transmission Date: 20090719
  Serious: No
  Sender: FDA-Public Use
  Company Number: US-BAYER-200836073NA

PATIENT
  Age: 69 Year
  Sex: Female
  Weight: 53 kg

DRUGS (1)
  1. CLIMARA PRO [Suspect]
     Indication: MENOPAUSAL SYMPTOMS
     Route: 062

REACTIONS (2)
  - APPLICATION SITE ERYTHEMA [None]
  - APPLICATION SITE RASH [None]
